FAERS Safety Report 14494726 (Version 2)
Quarter: 2019Q4

REPORT INFORMATION
  Report Type: Report from Study
  Country: FR (occurrence: FR)
  Receive Date: 20180206
  Receipt Date: 20191111
  Transmission Date: 20200122
  Serious: Yes (Hospitalization, Other)
  Sender: FDA-Public Use
  Company Number: FR-MYLANLABS-2018M1007812

PATIENT
  Age: 46 Year
  Sex: Male
  Weight: 89 kg

DRUGS (9)
  1. AVASTIN [Suspect]
     Active Substance: BEVACIZUMAB
     Indication: COLORECTAL CANCER METASTATIC
     Dosage: UNK
     Route: 065
     Dates: start: 20161011
  2. CALCIUM LEVOFOLINATE [Suspect]
     Active Substance: LEVOLEUCOVORIN CALCIUM
     Dosage: ON 17/JAN/2017 (CYCLE 9) AT THE DOSE OF 100 MG/M2.
     Route: 065
     Dates: start: 20170117
  3. IRINOTECAN [Suspect]
     Active Substance: IRINOTECAN
     Dosage: ON 05/JAN/2017 (CYCLE 7) AT THE DOSE OF 165 MG/M2.
     Route: 065
     Dates: start: 20170105
  4. CALCIUM LEVOFOLINATE [Suspect]
     Active Substance: LEVOLEUCOVORIN CALCIUM
     Indication: COLORECTAL CANCER METASTATIC
     Dosage: UNK
     Route: 065
     Dates: start: 20160928
  5. 5-FLUOROURACIL                     /00098801/ [Suspect]
     Active Substance: FLUOROURACIL
     Indication: COLORECTAL CANCER METASTATIC
     Dosage: UNK
     Route: 065
     Dates: start: 20160928
  6. IRINOTECAN [Suspect]
     Active Substance: IRINOTECAN
     Indication: COLORECTAL CANCER METASTATIC
     Dosage: UNK
     Route: 065
     Dates: start: 20160928
  7. OXALIPLATIN. [Suspect]
     Active Substance: OXALIPLATIN
     Indication: COLORECTAL CANCER METASTATIC
     Dosage: UNK
     Route: 065
     Dates: start: 20160928
  8. 5-FLUOROURACIL                     /00098801/ [Suspect]
     Active Substance: FLUOROURACIL
     Dosage: ON 17/JAN/2017 (CYCLE 9) AT THE DOSE OF 6400 MG/M2
     Route: 065
     Dates: start: 20170117
  9. OXALIPLATIN. [Suspect]
     Active Substance: OXALIPLATIN
     Dosage: ON 20/DEC/2016 (CYCLE 8) AT THE DOSE OF 85 MG/M2
     Route: 065
     Dates: start: 20161220

REACTIONS (3)
  - Pulmonary embolism [Recovered/Resolved]
  - Thrombosis [Recovered/Resolved]
  - Pelvic venous thrombosis [Recovered/Resolved]

NARRATIVE: CASE EVENT DATE: 20170103
